FAERS Safety Report 6857176-6 (Version None)
Quarter: 2010Q3

REPORT INFORMATION
  Report Type: 
  Country: None (occurrence: None)
  Receive Date: 20100719
  Receipt Date: 20100524
  Transmission Date: 20110219
  Serious: No
  Sender: FDA-Public Use
  Company Number: US-KINGPHARMUSA00001-K201000663

PATIENT
  Sex: Female
  Weight: 60.317 kg

DRUGS (2)
  1. LEVOXYL [Suspect]
     Indication: HYPOTHYROIDISM
     Dosage: 75 MCG, QAM
     Route: 048
     Dates: start: 19990801
  2. ESOMEPRAZOLE MAGNESIUM [Suspect]
     Dosage: UNK

REACTIONS (3)
  - DRUG INTERACTION [None]
  - FATIGUE [None]
  - ORAL DISCOMFORT [None]
